FAERS Safety Report 10766098 (Version 1)
Quarter: 2015Q1

REPORT INFORMATION
  Report Type: Spontaneous
  Country: US (occurrence: None)
  Receive Date: 20150204
  Receipt Date: 20150204
  Transmission Date: 20150721
  Serious: Yes (Hospitalization)
  Sender: FDA-Public Use
  Company Number: None

PATIENT
  Age: 28 Year
  Sex: Female
  Weight: 123.38 kg

DRUGS (10)
  1. BACLOFEN. [Concomitant]
     Active Substance: BACLOFEN
  2. SPRINTEC [Concomitant]
     Active Substance: ETHINYL ESTRADIOL\NORGESTIMATE
  3. OMEPRAZOLE. [Concomitant]
     Active Substance: OMEPRAZOLE
  4. TRAZODONE [Concomitant]
     Active Substance: TRAZODONE HYDROCHLORIDE
  5. OXYBUTYNIN [Concomitant]
     Active Substance: OXYBUTYNIN
  6. GABAPENTIN. [Concomitant]
     Active Substance: GABAPENTIN
  7. LORTAB [Concomitant]
     Active Substance: ACETAMINOPHEN\HYDROCODONE BITARTRATE
  8. PHENYTOIN. [Concomitant]
     Active Substance: PHENYTOIN
  9. TECFIDERA [Suspect]
     Active Substance: DIMETHYL FUMARATE
     Indication: MULTIPLE SCLEROSIS
     Dosage: 1 BID OPHTALMIC
     Route: 047
     Dates: start: 20130822, end: 20140105
  10. LIDOCAINE PATCH [Concomitant]
     Active Substance: LIDOCAINE

REACTIONS (4)
  - Eosinophilic myocarditis [None]
  - Cardiac ventricular thrombosis [None]
  - Restrictive cardiomyopathy [None]
  - Cardiac failure [None]

NARRATIVE: CASE EVENT DATE: 20140114
